FAERS Safety Report 19840332 (Version 1)
Quarter: 2021Q3

REPORT INFORMATION
  Report Type: Spontaneous
  Country: US (occurrence: US)
  Receive Date: 20210914
  Receipt Date: 20210914
  Transmission Date: 20211014
  Serious: No
  Sender: FDA-Public Use
  Company Number: None

PATIENT
  Age: 52 Year
  Sex: Male
  Weight: 139 kg

DRUGS (1)
  1. SULFUR HEXAFLUORIDE (SULFUR HEXAFLUORIDE MICROSPHERE 25MG/VIL INJ, SUSP) [Suspect]
     Active Substance: SULFUR HEXAFLUORIDE
     Indication: ANGIOGRAM
     Dosage: ?          OTHER STRENGTH:25MG/VIL;?
     Dates: start: 20210805, end: 20210805

REACTIONS (4)
  - Hyperhidrosis [None]
  - Respiratory depression [None]
  - Anaphylactic reaction [None]
  - Nausea [None]

NARRATIVE: CASE EVENT DATE: 20210805
